FAERS Safety Report 18020753 (Version 2)
Quarter: 2020Q3

REPORT INFORMATION
  Report Type: Spontaneous
  Country: TR (occurrence: TR)
  Receive Date: 20200714
  Receipt Date: 20200721
  Transmission Date: 20201103
  Serious: Yes (Hospitalization, Other)
  Sender: FDA-Public Use
  Company Number: NVSC2020TR187528

PATIENT
  Age: 46 Year
  Sex: Male

DRUGS (5)
  1. MOXIFLOXACIN. [Suspect]
     Active Substance: MOXIFLOXACIN
     Indication: STILL^S DISEASE
     Dosage: UNK, ON FIRST DAY
     Route: 065
  2. PREDNISOLONE. [Suspect]
     Active Substance: PREDNISOLONE
     Indication: PYREXIA
     Dosage: 60 MG, QD
     Route: 042
  3. HYDROCHLOROTHIAZIDE. [Suspect]
     Active Substance: HYDROCHLOROTHIAZIDE
     Indication: HYPERTENSION
     Dosage: 12.5 MG
     Route: 065
  4. CANDESARTAN CILEXETIL. [Suspect]
     Active Substance: CANDESARTAN CILEXETIL
     Indication: HYPERTENSION
     Dosage: 16 MG
     Route: 065
  5. ACETAMINOPHEN (PARACETAMOL) [Suspect]
     Active Substance: ACETAMINOPHEN
     Indication: PYREXIA
     Dosage: UNK, ON FIRST DAY
     Route: 065

REACTIONS (6)
  - Hypokalaemia [Unknown]
  - Still^s disease [Unknown]
  - Rash [Recovered/Resolved]
  - Erythema [Unknown]
  - Hyponatraemia [Unknown]
  - Pyrexia [Recovered/Resolved]
